FAERS Safety Report 18215738 (Version 1)
Quarter: 2020Q3

REPORT INFORMATION
  Report Type: Spontaneous
  Country: US (occurrence: US)
  Receive Date: 20200831
  Receipt Date: 20200831
  Transmission Date: 20201103
  Serious: No
  Sender: FDA-Public Use
  Company Number: US-WELLSTAT THERAPEUTICS CORPORATION-2089267

PATIENT
  Age: 54 Year
  Sex: Female

DRUGS (5)
  1. ESTRADIOL. [Concomitant]
     Active Substance: ESTRADIOL
  2. XURIDEN [Suspect]
     Active Substance: URIDINE TRIACETATE
     Indication: PROTEIN DEFICIENCY ANAEMIA
     Route: 065
     Dates: start: 201608
  3. ASPIRIN. [Concomitant]
     Active Substance: ASPIRIN
  4. SERTRALINE [Concomitant]
     Active Substance: SERTRALINE HYDROCHLORIDE
  5. METFORMIN [Concomitant]
     Active Substance: METFORMIN HYDROCHLORIDE

REACTIONS (2)
  - Menstrual disorder [Unknown]
  - Overdose [Unknown]

NARRATIVE: CASE EVENT DATE: 201909
